FAERS Safety Report 8016931-X (Version None)
Quarter: 2012Q1

REPORT INFORMATION
  Report Type: 
  Country: None (occurrence: None)
  Receive Date: 20120102
  Receipt Date: 20111221
  Transmission Date: 20120608
  Serious: Yes (Other)
  Sender: FDA-Public Use
  Company Number: PHEH2011US012330

PATIENT
  Sex: Male

DRUGS (6)
  1. CYCLOSPORINE [Suspect]
     Dosage: 125 MG, BID
     Route: 048
  2. ARANESP [Concomitant]
     Dosage: 300 UG, EVERY 2 WEEKS
     Route: 065
  3. CYCLOSPORINE [Suspect]
     Dosage: 100 MG, DAILY
     Route: 048
     Dates: start: 20101201
  4. CYCLOSPORINE [Suspect]
     Dosage: 50 MG, DAILY
     Route: 048
     Dates: start: 20100501
  5. EXJADE [Suspect]
     Indication: IRON OVERLOAD
     Dosage: 2000 MG, DAILY
     Route: 048
     Dates: start: 20110701
  6. ABILIFY [Concomitant]
     Dosage: 5 MG, DAILY
     Route: 048

REACTIONS (3)
  - NAUSEA [None]
  - RENAL FAILURE ACUTE [None]
  - OEDEMA PERIPHERAL [None]
